FAERS Safety Report 5011059-5 (Version None)
Quarter: 2006Q2

REPORT INFORMATION
  Report Type: 
  Country: None (occurrence: None)
  Receive Date: 20060524
  Receipt Date: 20060524
  Transmission Date: 20061013
  Serious: Yes (Hospitalization)
  Sender: FDA-Public Use
  Company Number: None

PATIENT
  Age: 80 Year
  Sex: Female

DRUGS (1)
  1. LITHIUM   150 MG [Suspect]
     Indication: BIPOLAR DISORDER
     Dosage: 150 MG QHS PO
     Route: 048

REACTIONS (4)
  - BLOOD CREATININE INCREASED [None]
  - DRUG LEVEL ABOVE THERAPEUTIC [None]
  - DRUG TOXICITY [None]
  - MENTAL STATUS CHANGES [None]
